FAERS Safety Report 11643274 (Version 2)
Quarter: 2015Q4

REPORT INFORMATION
  Report Type: Spontaneous
  Country: US (occurrence: US)
  Receive Date: 20151020
  Receipt Date: 20151113
  Transmission Date: 20160304
  Serious: No
  Sender: FDA-Public Use
  Company Number: US-009507513-1510USA008844

PATIENT
  Age: 40 Year
  Sex: Female

DRUGS (3)
  1. BUPROPION HYDROCHLORIDE. [Concomitant]
     Active Substance: BUPROPION HYDROCHLORIDE
  2. ERGOCALCIFEROL. [Concomitant]
     Active Substance: ERGOCALCIFEROL
  3. NUVARING [Suspect]
     Active Substance: ETHINYL ESTRADIOL\ETONOGESTREL
     Indication: CONTRACEPTION
     Dosage: 0.15/0.12 (UNITS NOT PROVIDED)
     Route: 067
     Dates: start: 1995

REACTIONS (2)
  - Device defective [Unknown]
  - Menstruation irregular [Unknown]

NARRATIVE: CASE EVENT DATE: 201509
